FAERS Safety Report 9371397 (Version 2)
Quarter: 2013Q3

REPORT INFORMATION
  Report Type: Spontaneous
  Country: ES (occurrence: ES)
  Receive Date: 20130627
  Receipt Date: 20130709
  Transmission Date: 20140515
  Serious: Yes (Other)
  Sender: FDA-Public Use
  Company Number: ES-RANBAXY-2013RR-70603

PATIENT
  Age: 83 Year
  Sex: Male

DRUGS (2)
  1. LOSARTAN/HYDROCHLOROTHIAZIDE [Suspect]
     Indication: HYPERTENSION
     Dosage: 100 MG / 25 MG
     Route: 065
  2. ACENOCOUMAROL [Interacting]
     Indication: ATRIAL FIBRILLATION
     Dosage: UNK
     Route: 065

REACTIONS (3)
  - Blood pressure inadequately controlled [Recovered/Resolved]
  - International normalised ratio abnormal [Unknown]
  - Drug interaction [Recovered/Resolved]
